FAERS Safety Report 4718768-3 (Version None)
Quarter: 2005Q3

REPORT INFORMATION
  Report Type: 
  Country: None (occurrence: None)
  Receive Date: 20050719
  Receipt Date: 20041118
  Transmission Date: 20060218
  Serious: Yes (Hospitalization, Other)
  Sender: FDA-Public Use
  Company Number: 2004239149US

PATIENT
  Age: 79 Year
  Sex: Male
  Weight: 63.5036 kg

DRUGS (1)
  1. CELEBREX [Suspect]
     Indication: NEUROPATHY
     Dates: start: 19990101, end: 19990101

REACTIONS (1)
  - CARDIAC FAILURE [None]
